FAERS Safety Report 22232294 (Version 1)
Quarter: 2023Q2

REPORT INFORMATION
  Report Type: Spontaneous
  Country: US (occurrence: None)
  Receive Date: 20230420
  Receipt Date: 20230420
  Transmission Date: 20230722
  Serious: No
  Sender: FDA-Public Use
  Company Number: US-ROCHE-3078712

PATIENT
  Sex: Female

DRUGS (1)
  1. ESBRIET [Suspect]
     Active Substance: PIRFENIDONE
     Indication: Idiopathic pulmonary fibrosis
     Dosage: TAKE 1 TABLET BY MOUTH 3 TIMES A DAY FOR 7 DAYS THEN TAKE 2 TABLETS BY MOUTH 3 TIMES A DAY FOR 7 DAY
     Route: 048
     Dates: start: 202203

REACTIONS (2)
  - Gastrointestinal disorder [Unknown]
  - Blister [Unknown]
